FAERS Safety Report 21217463 (Version 2)
Quarter: 2022Q3

REPORT INFORMATION
  Report Type: Spontaneous
  Country: US (occurrence: US)
  Receive Date: 20220816
  Receipt Date: 20220922
  Transmission Date: 20221027
  Serious: Yes (Death, Other)
  Sender: FDA-Public Use
  Company Number: US-PFIZER INC-202201057448

PATIENT
  Age: 66 Year
  Sex: Female
  Weight: 85.261 kg

DRUGS (7)
  1. PAXLOVID [Suspect]
     Active Substance: NIRMATRELVIR\RITONAVIR
     Indication: COVID-19 treatment
     Dosage: UNK
     Route: 048
     Dates: start: 20220810
  2. CARVEDILOL [Concomitant]
     Active Substance: CARVEDILOL
     Dosage: UNK
     Route: 048
  3. FUROSEMIDE [Concomitant]
     Active Substance: FUROSEMIDE
     Dosage: UNK
     Route: 048
  4. LISINOPRIL [Concomitant]
     Active Substance: LISINOPRIL
     Dosage: 10 MG, DAILY
     Route: 048
  5. ALBUTEROL SULFATE [Concomitant]
     Active Substance: ALBUTEROL SULFATE
     Dosage: INHALED
  6. ASPIRIN [Concomitant]
     Active Substance: ASPIRIN
     Dosage: 8 MG
  7. COREG [Concomitant]
     Active Substance: CARVEDILOL
     Dosage: UNK, 2X/DAY (6.25 BID)

REACTIONS (1)
  - Death [Fatal]

NARRATIVE: CASE EVENT DATE: 20220812
